FAERS Safety Report 6218164-6 (Version None)
Quarter: 2009Q2

REPORT INFORMATION
  Report Type: 
  Country: None (occurrence: None)
  Receive Date: 20090608
  Receipt Date: 20090529
  Transmission Date: 20091009
  Serious: Yes (Other)
  Sender: FDA-Public Use
  Company Number: PHHY2009KR21103

PATIENT
  Sex: Female

DRUGS (1)
  1. ACLASTA [Suspect]
     Indication: OSTEOPOROSIS
     Dosage: 5 MG, UNK
     Route: 042
     Dates: start: 20090519

REACTIONS (5)
  - FALL [None]
  - FOOT FRACTURE [None]
  - OEDEMA PERIPHERAL [None]
  - PAIN [None]
  - SURGERY [None]
